FAERS Safety Report 11970272 (Version 1)
Quarter: 2016Q1

REPORT INFORMATION
  Report Type: Spontaneous
  Country: US (occurrence: None)
  Receive Date: 20160127
  Receipt Date: 20160127
  Transmission Date: 20160526
  Serious: Yes (Hospitalization)
  Sender: FDA-Public Use
  Company Number: None

PATIENT
  Age: 70 Year
  Sex: Male
  Weight: 76.5 kg

DRUGS (1)
  1. PRAVASTATIN [Suspect]
     Active Substance: PRAVASTATIN\PRAVASTATIN SODIUM
     Indication: HYPERLIPIDAEMIA
     Route: 048
     Dates: start: 20150717, end: 20151117

REACTIONS (6)
  - Myalgia [None]
  - Pain [None]
  - Pain in extremity [None]
  - Blood creatine phosphokinase increased [None]
  - Asthenia [None]
  - Acute kidney injury [None]

NARRATIVE: CASE EVENT DATE: 20151219
